FAERS Safety Report 6694774-7 (Version None)
Quarter: 2010Q2

REPORT INFORMATION
  Report Type: 
  Country: None (occurrence: None)
  Receive Date: 20100423
  Receipt Date: 20100416
  Transmission Date: 20101027
  Serious: Yes (Hospitalization)
  Sender: FDA-Public Use
  Company Number: B0649087A

PATIENT
  Age: 32 Year
  Sex: Female

DRUGS (12)
  1. RANITIDINE [Suspect]
  2. PREDNISOLONE [Suspect]
     Indication: ARTHRALGIA
  3. ACETYLSALICYLIC ACID [Suspect]
     Indication: PAIN
  4. METAMIZOLE [Suspect]
  5. CEPHALOSPORIN [Suspect]
     Dosage: 500MG THREE TIMES PER DAY
  6. IMMUNE GLOBULIN INTRAVENOUS (HUMAN) [Suspect]
     Dosage: .5GK PER DAY
     Route: 042
  7. FENTANYL [Suspect]
     Route: 042
  8. OXYCODONE HCL [Suspect]
  9. DALTEPARIN [Suspect]
     Indication: THROMBOSIS PROPHYLAXIS
  10. CLINDAMYCIN [Suspect]
     Indication: INFECTION PROPHYLAXIS
     Dosage: 600MG FOUR TIMES PER DAY
  11. FILGRASTIM [Suspect]
  12. SODIUM BICARBONATE [Suspect]
     Indication: METABOLIC ACIDOSIS

REACTIONS (21)
  - BLISTER [None]
  - CONDITION AGGRAVATED [None]
  - CYST [None]
  - DRUG EXPOSURE DURING PREGNANCY [None]
  - EATING DISORDER [None]
  - ERYTHEMA MULTIFORME [None]
  - HYPERNATRAEMIA [None]
  - HYPOKALAEMIA [None]
  - LEUKOPENIA [None]
  - LIVE BIRTH [None]
  - METABOLIC ACIDOSIS [None]
  - OEDEMA [None]
  - PHARYNGITIS [None]
  - PREMATURE RUPTURE OF MEMBRANES [None]
  - PYREXIA [None]
  - RASH PRURITIC [None]
  - RENAL TUBULAR DISORDER [None]
  - SKIN DISORDER [None]
  - SKIN LESION [None]
  - STEVENS-JOHNSON SYNDROME [None]
  - TOXIC EPIDERMAL NECROLYSIS [None]
